FAERS Safety Report 5255714-0 (Version None)
Quarter: 2007Q1

REPORT INFORMATION
  Report Type: 
  Country: None (occurrence: None)
  Receive Date: 20070305
  Receipt Date: 20070302
  Transmission Date: 20070707
  Serious: Yes (Hospitalization)
  Sender: FDA-Public Use
  Company Number: FR-MERCK-0703FRA00003

PATIENT
  Age: 77 Year
  Sex: Female
  Weight: 51 kg

DRUGS (14)
  1. ZETIA [Suspect]
     Indication: DYSLIPIDAEMIA
     Route: 048
     Dates: start: 20060515, end: 20070116
  2. AMLODIPINE BESYLATE [Concomitant]
     Indication: HYPERTENSION
     Route: 048
  3. IRBESARTAN [Concomitant]
     Indication: HYPERTENSION
     Route: 048
  4. ACARBOSE [Concomitant]
     Indication: DIABETES MELLITUS NON-INSULIN-DEPENDENT
     Route: 048
  5. BISOPROLOL FUMARATE [Concomitant]
     Indication: HYPERTENSION
     Route: 048
  6. ESOMEPRAZOLE MAGNESIUM [Concomitant]
     Route: 048
  7. GLICLAZIDE [Concomitant]
     Indication: DIABETES MELLITUS NON-INSULIN-DEPENDENT
     Route: 048
  8. BROMAZEPAM [Concomitant]
     Indication: ANXIETY
     Route: 048
  9. ASPIRIN LYSINE [Concomitant]
     Route: 048
  10. FLUINDIONE [Concomitant]
     Route: 048
  11. AMIODARONE [Concomitant]
     Indication: ATRIAL FIBRILLATION
     Route: 048
     Dates: start: 20040101, end: 20040101
  12. AMIODARONE [Concomitant]
     Route: 048
     Dates: start: 20050101, end: 20050101
  13. AMIODARONE [Concomitant]
     Route: 048
     Dates: start: 20060101, end: 20060101
  14. AMIODARONE [Concomitant]
     Route: 048
     Dates: start: 20060101

REACTIONS (1)
  - EOSINOPHILIC PNEUMONIA [None]
